FAERS Safety Report 5389330-7 (Version None)
Quarter: 2007Q3

REPORT INFORMATION
  Report Type: 
  Country: None (occurrence: None)
  Receive Date: 20070703
  Receipt Date: 20070524
  Transmission Date: 20080115
  Serious: No
  Sender: FDA-Public Use
  Company Number: 2006PV012143

PATIENT
  Age: 65 Year
  Sex: Female
  Weight: 67.586 kg

DRUGS (11)
  1. SYMLIN [Suspect]
     Indication: TYPE 2 DIABETES MELLITUS
     Dosage: 60 MCG;TID;SC
     Route: 058
     Dates: start: 20060330, end: 20060716
  2. SYMLIN [Suspect]
  3. SYMLIN [Suspect]
     Dosage: 15 MCG;TID;SC
     Route: 058
     Dates: start: 20060301, end: 20060301
  4. SYMLIN [Suspect]
     Dosage: 60 MCG;TID;SC
     Route: 058
     Dates: start: 20060330, end: 20060716
  5. SYMLIN [Suspect]
     Dosage: 120 MCG;TID;SC : SC
     Route: 058
     Dates: start: 20060101, end: 20061201
  6. SYMLIN [Suspect]
     Dosage: 120 MCG;TID;SC : SC
     Route: 058
     Dates: start: 20060717
  7. SYMLIN [Suspect]
     Dosage: 120 MCG;TID;SC
     Route: 058
     Dates: start: 20070522
  8. LANTUS [Concomitant]
  9. NOVOLOG [Concomitant]
  10. ZYRTEC [Concomitant]
  11. PREVACID [Concomitant]

REACTIONS (12)
  - BLOOD GLUCOSE INCREASED [None]
  - CARDIAC STRESS TEST [None]
  - DECREASED APPETITE [None]
  - DYSPHAGIA [None]
  - EARLY SATIETY [None]
  - ENERGY INCREASED [None]
  - HEADACHE [None]
  - NAUSEA [None]
  - POSTNASAL DRIP [None]
  - SINUSITIS [None]
  - WEIGHT DECREASED [None]
  - WEIGHT INCREASED [None]
